FAERS Safety Report 9823441 (Version 2)
Quarter: 2014Q1

REPORT INFORMATION
  Report Type: Spontaneous
  Country: US (occurrence: US)
  Receive Date: 20140116
  Receipt Date: 20140116
  Transmission Date: 20141002
  Serious: Yes (Hospitalization)
  Sender: FDA-Public Use
  Company Number: US-GILEAD-2011-0035175

PATIENT
  Age: 85 Year
  Sex: Female

DRUGS (26)
  1. LETAIRIS [Suspect]
     Indication: PULMONARY HYPERTENSION
     Route: 048
     Dates: start: 20101223
  2. LETAIRIS [Suspect]
     Indication: SLEEP APNOEA SYNDROME
  3. LETAIRIS [Suspect]
     Indication: DIASTOLIC DYSFUNCTION
  4. SILDENAFIL [Concomitant]
  5. DIGOXIN [Concomitant]
  6. PRINIVIL [Concomitant]
  7. ALDACTONE [Concomitant]
  8. BUMETANIDE [Concomitant]
  9. FLECAINIDE [Concomitant]
  10. ASPIRIN [Concomitant]
  11. ADVAIR DISKUS [Concomitant]
  12. ALBUTEROL [Concomitant]
  13. SYNTHROID [Concomitant]
  14. POTASSIUM CHLORIDE/SODIUM SULFATE/MACROGOL/SODIUM BICARBONATE/SODIUM CHLORIDE [Concomitant]
  15. PRAVACHOL [Concomitant]
  16. PRILOSEC [Concomitant]
  17. DURAGESIC [Concomitant]
  18. LIDODERM [Concomitant]
  19. MAGNESIUM OXIDE [Concomitant]
  20. MUCINEX DM [Concomitant]
  21. K-DUR [Concomitant]
  22. D3 [Concomitant]
  23. OMEGA 3 [Concomitant]
  24. VITAMIN C [Concomitant]
  25. VITAMIN B COMPLEX [Concomitant]
  26. ERGOCALCIFEROL/NICOTINAMIDE/RETINOL/ASCORBIC ACID/FOLIC ACID/PANTHENOL/RIBOFLAVIN/THIAMINE HYDROCHLO [Concomitant]

REACTIONS (2)
  - Swelling [Recovered/Resolved]
  - Dyspnoea [Recovered/Resolved]
